FAERS Safety Report 7161521-4 (Version None)
Quarter: 2010Q4

REPORT INFORMATION
  Report Type: 
  Country: None (occurrence: None)
  Receive Date: 20101215
  Receipt Date: 20101212
  Transmission Date: 20110411
  Serious: No
  Sender: FDA-Public Use
  Company Number: US-PFIZER INC-2010169816

PATIENT
  Sex: Female

DRUGS (4)
  1. LIPITOR [Suspect]
     Indication: BLOOD CHOLESTEROL INCREASED
     Dosage: 20 MG, 1X/DAY
     Route: 048
     Dates: start: 20010601
  2. LIPITOR [Suspect]
     Dosage: 80 MG, 1X/DAY
     Route: 048
  3. LIPITOR [Suspect]
     Dosage: UNK
     Dates: start: 20040101
  4. ACETYLSALICYLIC ACID [Concomitant]
     Dosage: UNK, DAILY

REACTIONS (2)
  - GASTROOESOPHAGEAL REFLUX DISEASE [None]
  - HYPERTENSION [None]
